FAERS Safety Report 5162316-3 (Version None)
Quarter: 2006Q4

REPORT INFORMATION
  Report Type: 
  Country: None (occurrence: None)
  Receive Date: 20061130
  Receipt Date: 20061120
  Transmission Date: 20070319
  Serious: Yes (Congenital Anomaly, Other)
  Sender: FDA-Public Use
  Company Number: US-ABBOTT-06P-163-0351164-00

PATIENT
  Sex: Male
  Weight: 2.688 kg

DRUGS (2)
  1. DEPAKOTE [Suspect]
     Indication: DRUG EXPOSURE DURING PREGNANCY
     Route: 065
  2. CARBAMAZEPINE [Suspect]
     Indication: DRUG EXPOSURE DURING PREGNANCY
     Route: 065

REACTIONS (10)
  - AORTIC STENOSIS [None]
  - BICUSPID AORTIC VALVE [None]
  - CLINODACTYLY [None]
  - CONGENITAL FACIAL NERVE HYPOPLASIA [None]
  - CONGENITAL NAIL DISORDER [None]
  - DYSMORPHISM [None]
  - HEAD CIRCUMFERENCE ABNORMAL [None]
  - HYPOTONIA [None]
  - PATENT DUCTUS ARTERIOSUS [None]
  - PREMATURE BABY [None]
